FAERS Safety Report 21870978 (Version 1)
Quarter: 2023Q1

REPORT INFORMATION
  Report Type: Spontaneous
  Country: US (occurrence: US)
  Receive Date: 20230117
  Receipt Date: 20230117
  Transmission Date: 20230417
  Serious: Yes (Other)
  Sender: FDA-Public Use
  Company Number: US-drreddys-SPO/USA/23/0159825

PATIENT
  Age: 50 Year
  Sex: Female

DRUGS (11)
  1. HEPARIN SODIUM [Suspect]
     Active Substance: HEPARIN SODIUM
     Indication: Product used for unknown indication
  2. lidocaine 5% (ointment) [Concomitant]
     Indication: Ventricular arrhythmia
  3. lidocaine 5% (ointment) [Concomitant]
     Indication: Hypotension
  4. PREDNISONE [Concomitant]
     Active Substance: PREDNISONE
     Indication: Myocarditis
  5. PREDNISONE [Concomitant]
     Active Substance: PREDNISONE
     Dosage: TAPER (4- TO 6-WEEK)
  6. EPINEPHRINE [Concomitant]
     Active Substance: EPINEPHRINE
     Indication: Ventricular arrhythmia
  7. EPINEPHRINE [Concomitant]
     Active Substance: EPINEPHRINE
     Indication: Hypotension
  8. AMIODARONE HYDROCHLORIDE [Concomitant]
     Active Substance: AMIODARONE HYDROCHLORIDE
     Indication: Hypotension
  9. AMIODARONE HYDROCHLORIDE [Concomitant]
     Active Substance: AMIODARONE HYDROCHLORIDE
     Indication: Ventricular arrhythmia
  10. COLCHICINE [Concomitant]
     Active Substance: COLCHICINE
  11. ABATACEPT [Concomitant]
     Active Substance: ABATACEPT
     Indication: Cardiac failure
     Dosage: (1,000 MG) ON THE DAY OF HER CARDIAC ARREST. ON DAYS 4 AND 7 POSTARREST
     Route: 042

REACTIONS (1)
  - Heparin-induced thrombocytopenia [Unknown]
